FAERS Safety Report 8831316 (Version 1)
Quarter: 2012Q4

REPORT INFORMATION
  Report Type: Report from Study
  Country: CA (occurrence: CA)
  Receive Date: 20121009
  Receipt Date: 20121009
  Transmission Date: 20130627
  Serious: Yes (Death)
  Sender: FDA-Public Use
  Company Number: CA-CELGENEUS-028-50794-12100638

PATIENT

DRUGS (1)
  1. VIDAZA [Suspect]
     Indication: MDS
     Dosage: 50 milligram/sq. meter
     Route: 065

REACTIONS (1)
  - Death [Fatal]
